FAERS Safety Report 6479980-9 (Version None)
Quarter: 2009Q4

REPORT INFORMATION
  Report Type: 
  Country: None (occurrence: None)
  Receive Date: 20091208
  Receipt Date: 20091126
  Transmission Date: 20100525
  Serious: Yes (Hospitalization)
  Sender: FDA-Public Use
  Company Number: JP-ROCHE-672220

PATIENT
  Age: 32 Year
  Sex: Female
  Weight: 49 kg

DRUGS (7)
  1. TAMIFLU [Suspect]
     Indication: INFLUENZA
     Route: 048
     Dates: start: 20091106, end: 20091108
  2. FLOMOX [Suspect]
     Indication: INFLUENZA
     Route: 048
     Dates: start: 20091106, end: 20091108
  3. ASTOMIN [Suspect]
     Indication: INFLUENZA
     Route: 048
     Dates: start: 20091106, end: 20091108
  4. IBRUPROFEN [Suspect]
     Indication: INFLUENZA
     Route: 048
     Dates: start: 20091106, end: 20091108
  5. DASEN [Suspect]
     Indication: INFLUENZA
     Route: 048
     Dates: start: 20091106, end: 20091108
  6. TRANSAMIN [Suspect]
     Indication: INFLUENZA
     Route: 048
     Dates: start: 20091106, end: 20091108
  7. SELBEX [Suspect]
     Indication: INFLUENZA
     Route: 048
     Dates: start: 20091106, end: 20091108

REACTIONS (2)
  - HEPATIC FUNCTION ABNORMAL [None]
  - MUCOUS MEMBRANE DISORDER [None]
